FAERS Safety Report 7883524-4 (Version None)
Quarter: 2011Q4

REPORT INFORMATION
  Report Type: 
  Country: None (occurrence: None)
  Receive Date: 20111102
  Receipt Date: 20111026
  Transmission Date: 20120403
  Serious: Yes (Death)
  Sender: FDA-Public Use
  Company Number: JP-ASTELLAS-2011JP007675

PATIENT
  Age: 75 Year
  Sex: Male

DRUGS (14)
  1. FUNGUARD [Suspect]
     Dosage: 300 MG, UNKNOWN/D
     Route: 065
  2. PREDNISOLONE [Concomitant]
     Dosage: 25 MG, UNKNOWN/D
     Route: 065
  3. AMPICILLIN AND SULBACTAM [Concomitant]
     Dosage: 3 G, BID
     Route: 065
  4. PENTAMIDINE ISETHIONATE [Concomitant]
     Dosage: 3 MG/KG, UNKNOWN/D
     Route: 041
  5. METHYLPREDNISOLONE [Concomitant]
     Route: 065
  6. SULFAMETHOXAZOLE AND TRIMETHOPRIM [Concomitant]
     Route: 065
  7. PENTAMIDINE ISETHIONATE [Concomitant]
     Dosage: 3 MG/KG, UNKNOWN/D
     Route: 041
  8. MEROPENEM [Concomitant]
     Dosage: 0.5 G, BID
     Route: 065
  9. PREDNISOLONE [Concomitant]
     Dosage: 40 MG, UNKNOWN/D
     Route: 065
  10. FLUCONAZOLE [Concomitant]
     Dosage: 200 MG, UNKNOWN/D
     Route: 065
  11. FUNGUARD [Suspect]
     Dosage: 150 MG, UNKNOWN/D
     Route: 065
  12. CIPROFLOXACIN [Concomitant]
     Dosage: 300 MG, BID
     Route: 065
  13. PREDNISOLONE [Concomitant]
     Dosage: 30 MG, UNKNOWN/D
     Route: 065
  14. DORIPENEM MONOHYDRATE [Concomitant]
     Route: 065

REACTIONS (1)
  - TRICHOSPORON INFECTION [None]
